FAERS Safety Report 18968026 (Version 1)
Quarter: 2021Q1

REPORT INFORMATION
  Report Type: Spontaneous
  Country: US (occurrence: US)
  Receive Date: 20210304
  Receipt Date: 20210304
  Transmission Date: 20210420
  Serious: Yes (Hospitalization, Other)
  Sender: FDA-Public Use
  Company Number: US-UNICHEM PHARMACEUTICALS (USA) INC-UCM202102-000193

PATIENT
  Age: 70 Year
  Sex: Male

DRUGS (1)
  1. BACLOFEN. [Suspect]
     Active Substance: BACLOFEN
     Indication: CENTRAL CORD SYNDROME
     Route: 037

REACTIONS (1)
  - Osteomyelitis [Recovered/Resolved]
